FAERS Safety Report 7070296-9 (Version None)
Quarter: 2010Q4

REPORT INFORMATION
  Report Type: 
  Country: None (occurrence: None)
  Receive Date: 20101028
  Receipt Date: 20101001
  Transmission Date: 20110411
  Serious: No
  Sender: FDA-Public Use
  Company Number: US-WYE-H17924310

PATIENT
  Sex: Female
  Weight: 87.17 kg

DRUGS (6)
  1. EFFEXOR XR [Suspect]
     Indication: DEPRESSION
     Dosage: 75 MG UNSPECIFIED FREQUENCY
     Dates: start: 20090101, end: 20100101
  2. EFFEXOR XR [Suspect]
     Indication: ANXIETY
  3. VENLAFAXINE HYDROCHLORIDE [Suspect]
     Indication: ANXIETY
     Route: 048
     Dates: start: 20100101
  4. VENLAFAXINE HYDROCHLORIDE [Suspect]
     Indication: DEPRESSION
  5. EFFEXOR [Suspect]
     Indication: ANXIETY
     Dosage: 75 MG UNSPECIFIED FREQUENCY
     Dates: end: 20090101
  6. EFFEXOR [Suspect]
     Indication: DEPRESSION

REACTIONS (3)
  - DECREASED APPETITE [None]
  - MEMORY IMPAIRMENT [None]
  - THERAPEUTIC RESPONSE UNEXPECTED [None]
